FAERS Safety Report 10601737 (Version 1)
Quarter: 2014Q4

REPORT INFORMATION
  Report Type: Spontaneous
  Country: US (occurrence: None)
  Receive Date: 20141121
  Receipt Date: 20141121
  Transmission Date: 20150529
  Serious: Yes (Hospitalization)
  Sender: FDA-Public Use
  Company Number: None

PATIENT
  Age: 66 Year
  Sex: Male
  Weight: 96.7 kg

DRUGS (1)
  1. DALBAVANCIN. [Suspect]
     Active Substance: DALBAVANCIN
     Route: 042
     Dates: start: 20141119

REACTIONS (2)
  - Product colour issue [None]
  - Liquid product physical issue [None]

NARRATIVE: CASE EVENT DATE: 20141119
